FAERS Safety Report 5571389-5 (Version None)
Quarter: 2007Q4

REPORT INFORMATION
  Report Type: 
  Country: None (occurrence: None)
  Receive Date: 20071221
  Receipt Date: 20070927
  Transmission Date: 20080405
  Serious: No
  Sender: FDA-Public Use
  Company Number: A0684721A

PATIENT
  Age: 32 Year
  Sex: Male

DRUGS (4)
  1. FLONASE [Suspect]
     Dosage: 2SPR PER DAY
     Route: 045
     Dates: start: 20070906
  2. ANTIBIOTIC [Suspect]
     Route: 065
  3. ALLEGRA [Suspect]
     Route: 065
  4. WELLBUTRIN [Concomitant]

REACTIONS (1)
  - DIARRHOEA [None]
